FAERS Safety Report 9474425 (Version 1)
Quarter: 2013Q3

REPORT INFORMATION
  Report Type: Spontaneous
  Country: SE (occurrence: SE)
  Receive Date: 20130823
  Receipt Date: 20130823
  Transmission Date: 20140515
  Serious: Yes (Other)
  Sender: FDA-Public Use
  Company Number: SE-PFIZER INC-2013240802

PATIENT
  Age: 44 Year
  Sex: Female

DRUGS (1)
  1. VIAGRA [Suspect]
     Indication: CARDIOPULMONARY FAILURE
     Dosage: 50 MG, 3X/DAY
     Dates: start: 201102

REACTIONS (2)
  - Visual field defect [Not Recovered/Not Resolved]
  - Off label use [Unknown]
